FAERS Safety Report 9515578 (Version 1)
Quarter: 2013Q1

REPORT INFORMATION
  Report Type: Spontaneous
  Country: US (occurrence: None)
  Receive Date: 20130305
  Receipt Date: 20130305
  Transmission Date: 20140127
  Serious: Yes (Other)
  Sender: FDA-Public Use
  Company Number: 163-21880-12120756

PATIENT
  Age: 79 Year
  Sex: Male

DRUGS (9)
  1. REVLIMID [Suspect]
     Indication: MYELODYSPLASTIC SYNDROME
     Route: 048
     Dates: start: 20110209
  2. ALDACTONE (SPIRONOLACTONE) [Concomitant]
  3. ATIVAN (LORAZEPAM) [Concomitant]
  4. HALDOL [Concomitant]
  5. LORATIDINE [Concomitant]
  6. MILK OF MAGNESIA (MAGNESIUM HYDROXIDE) [Concomitant]
  7. NEURONTIN (GABAPENTIN) [Concomitant]
  8. PERCOCET (OXYCOCET) [Concomitant]
  9. PROCRIT (ERYTHROPOIETIN) [Concomitant]

REACTIONS (1)
  - Subcutaneous abscess [None]
